FAERS Safety Report 16821982 (Version 2)
Quarter: 2019Q4

REPORT INFORMATION
  Report Type: Report from Study
  Country: CO (occurrence: CO)
  Receive Date: 20190918
  Receipt Date: 20191128
  Transmission Date: 20200122
  Serious: Yes (Hospitalization, Other)
  Sender: FDA-Public Use
  Company Number: CO-AMGEN-COLSL2019151781

PATIENT
  Age: 31 Year
  Sex: Female

DRUGS (3)
  1. VECTIBIX [Suspect]
     Active Substance: PANITUMUMAB
     Indication: COLORECTAL CANCER METASTATIC
     Dosage: 270 MILLIGRAM
     Route: 042
     Dates: start: 20190401
  2. VECTIBIX [Suspect]
     Active Substance: PANITUMUMAB
     Dosage: 270 MILLIGRAM
     Route: 042
     Dates: start: 2019
  3. NATURAL TEARS [Concomitant]
     Active Substance: POLYVINYL ALCOHOL\POVIDONE
     Dosage: 1 BOTTLE
     Dates: start: 20191120

REACTIONS (3)
  - Skin disorder [Recovering/Resolving]
  - Skin haemorrhage [Recovering/Resolving]
  - Urinary tract infection [Recovering/Resolving]

NARRATIVE: CASE EVENT DATE: 20190830
